FAERS Safety Report 4777089-3 (Version None)
Quarter: 2005Q3

REPORT INFORMATION
  Report Type: 
  Country: None (occurrence: None)
  Receive Date: 20050923
  Receipt Date: 20050914
  Transmission Date: 20060218
  Serious: Yes (Other)
  Sender: FDA-Public Use
  Company Number: JP-JNJFOC-20050802095

PATIENT
  Age: 43 Year
  Sex: Male

DRUGS (3)
  1. LEUSTATIN [Suspect]
     Indication: NON-HODGKIN'S LYMPHOMA
     Route: 041
  2. VALPROATE SODIUM [Suspect]
     Indication: EPILEPSY
     Route: 048
  3. MULTIPLE CONCOMITANT MEDICATIONS [Concomitant]

REACTIONS (6)
  - DIARRHOEA [None]
  - ENCEPHALITIS HERPES [None]
  - ERYTHEMA MULTIFORME [None]
  - PLATELET COUNT DECREASED [None]
  - PYREXIA [None]
  - WHITE BLOOD CELL COUNT DECREASED [None]
